FAERS Safety Report 10402188 (Version 1)
Quarter: 2014Q3

REPORT INFORMATION
  Report Type: Spontaneous
  Country: GB (occurrence: None)
  Receive Date: 20140819
  Receipt Date: 20140819
  Transmission Date: 20150326
  Serious: Yes (Other)
  Sender: FDA-Public Use
  Company Number: AUR-APL-2014-08648

PATIENT
  Age: 52 Year
  Sex: Female

DRUGS (1)
  1. TERBINAFINE [Suspect]
     Active Substance: TERBINAFINE
     Indication: ONYCHOMYCOSIS
     Route: 048
     Dates: start: 20130816, end: 20140723

REACTIONS (4)
  - Lymphocyte count decreased [None]
  - Medication error [None]
  - Neutrophil count decreased [None]
  - Blood disorder [None]
